FAERS Safety Report 10689366 (Version 5)
Quarter: 2019Q1

REPORT INFORMATION
  Report Type: Spontaneous
  Country: BE (occurrence: BE)
  Receive Date: 20150105
  Receipt Date: 20190330
  Transmission Date: 20190417
  Serious: Yes (Hospitalization, Other)
  Sender: FDA-Public Use
  Company Number: BE-ACCORD-027924

PATIENT
  Age: 75 Year
  Sex: Male

DRUGS (3)
  1. FOLINIC ACID [Suspect]
     Active Substance: LEUCOVORIN
     Indication: COLORECTAL CANCER METASTATIC
     Dosage: DOSE OD FOLFOX: 85 MG/M2?CUMULATIVE DOSE PRE-OPERATIVE: 833 MG?CUMULATIVE DOSE POST-OPERATIVE:864
  2. OXALIPLATIN. [Suspect]
     Active Substance: OXALIPLATIN
     Indication: COLORECTAL CANCER METASTATIC
     Dosage: DOSE OD FOLFOX: 85 MG/M2?CUMULATIVE DOSE PRE-OPERATIVE: 833 MG?CUMULATIVE DOSE POST-OPERATIVE:864
  3. FLUOROURACIL. [Suspect]
     Active Substance: FLUOROURACIL
     Indication: COLORECTAL CANCER METASTATIC
     Dosage: DOSE OD FOLFOX: 85 MG/M2?CUMULATIVE DOSE PRE-OPERATIVE: 833 MG?CUMULATIVE DOSE POST-OPERATIVE:864

REACTIONS (7)
  - Autonomic neuropathy [Recovering/Resolving]
  - Decreased appetite [Recovered/Resolved]
  - Intestinal pseudo-obstruction [Recovering/Resolving]
  - Weight decreased [Recovered/Resolved]
  - Paraesthesia [Recovered/Resolved]
  - Venoocclusive liver disease [Recovered/Resolved]
  - Posture abnormal [Unknown]
